FAERS Safety Report 4915113-5 (Version None)
Quarter: 2006Q1

REPORT INFORMATION
  Report Type: 
  Country: None (occurrence: None)
  Receive Date: 20060215
  Receipt Date: 20060215
  Transmission Date: 20060701
  Serious: Yes (Other)
  Sender: FDA-Public Use
  Company Number: None

PATIENT
  Sex: Male
  Weight: 78.0187 kg

DRUGS (1)
  1. GLYBURID / METFORMIN  5/500 TABS [Suspect]
     Indication: DIABETES MELLITUS
     Dosage: 1 TAB TWICE DAILY

REACTIONS (1)
  - BLOOD GLUCOSE INCREASED [None]
